FAERS Safety Report 8626863 (Version 3)
Quarter: 2013Q1

REPORT INFORMATION
  Report Type: Spontaneous
  Country: CO (occurrence: None)
  Receive Date: 20120608
  Receipt Date: 20120927
  Transmission Date: 20140127
  Serious: Yes (Disabling, Other)
  Sender: FDA-Public Use
  Company Number: ENTC2012-0219

PATIENT
  Age: 58 Year
  Sex: Male

DRUGS (3)
  1. STALEVO [Suspect]
     Dosage: FIVE TABLETS PER DAY, STRENGTH: 200
     Route: 048
     Dates: start: 2005
  2. MIRAPEX [Concomitant]
  3. TRAZODONE HYDROCHLORIDE [Concomitant]

REACTIONS (7)
  - PRODUCT QUALITY ISSUE [None]
  - PRODUCT PACKAGING ISSUE [None]
  - PRODUCT LABEL ISSUE [None]
  - MUSCULOSKELETAL STIFFNESS [None]
  - GAIT DISTURBANCE [None]
  - HYPERKINESIA [None]
  - AKINESIA [None]
